FAERS Safety Report 11142372 (Version 1)
Quarter: 2015Q2

REPORT INFORMATION
  Report Type: Spontaneous
  Country: US (occurrence: US)
  Receive Date: 20150527
  Receipt Date: 20150527
  Transmission Date: 20150821
  Serious: No
  Sender: FDA-Public Use
  Company Number: US-MALLINCKRODT-QSC-2014-0480

PATIENT
  Sex: Female
  Weight: 68.48 kg

DRUGS (7)
  1. FOSAMAX [Concomitant]
     Active Substance: ALENDRONATE SODIUM
     Dosage: UNK, Q WK
     Dates: start: 20131009
  2. ERGOCALCIFEROL. [Concomitant]
     Active Substance: ERGOCALCIFEROL
     Dosage: UNK, Q WK
  3. CALCIUM + VITAMIN D                /00944201/ [Concomitant]
     Active Substance: CALCIUM\VITAMIN D
     Dosage: UNK, QD
     Dates: start: 20131009
  4. POTASSIUM [Concomitant]
     Active Substance: POTASSIUM
     Dosage: UNK, QD
  5. H.P. ACTHAR [Suspect]
     Active Substance: CORTICOTROPIN
     Indication: GLOMERULONEPHRITIS MINIMAL LESION
     Dosage: 80 UNITS, BIW
     Route: 058
     Dates: start: 201402
  6. LOPRESSOR [Concomitant]
     Active Substance: METOPROLOL TARTRATE
     Dosage: UNK, BID
  7. TORSEMIDE. [Concomitant]
     Active Substance: TORSEMIDE
     Dosage: UNK, QD
     Dates: start: 201310

REACTIONS (3)
  - Protein total decreased [Not Recovered/Not Resolved]
  - Blood albumin increased [Not Recovered/Not Resolved]
  - Alopecia [Not Recovered/Not Resolved]

NARRATIVE: CASE EVENT DATE: 2014
